FAERS Safety Report 13951659 (Version 2)
Quarter: 2017Q3

REPORT INFORMATION
  Report Type: Spontaneous
  Country: TW (occurrence: TW)
  Receive Date: 20170908
  Receipt Date: 20170914
  Transmission Date: 20171128
  Serious: Yes (Life-Threatening, Hospitalization, Other)
  Sender: FDA-Public Use
  Company Number: TW-VALIDUS PHARMACEUTICALS LLC-TW-2017VAL001316

PATIENT
  Age: 35 Year
  Sex: Male

DRUGS (3)
  1. WARFARIN SODIUM. [Suspect]
     Active Substance: WARFARIN SODIUM
     Indication: PULMONARY EMBOLISM
     Dosage: UNK
     Route: 065
  2. PREDNISOLONE. [Suspect]
     Active Substance: PREDNISOLONE
     Indication: GLOMERULONEPHRITIS MINIMAL LESION
     Dosage: 60 MG, QD
     Route: 048
  3. FUROSEMIDE. [Suspect]
     Active Substance: FUROSEMIDE
     Indication: GLOMERULONEPHRITIS MINIMAL LESION
     Dosage: 40 MG, QD
     Route: 065

REACTIONS (6)
  - Pulmonary artery thrombosis [Recovered/Resolved]
  - Syncope [Recovered/Resolved]
  - Pulmonary artery occlusion [Recovered/Resolved]
  - Fibrin D dimer increased [Recovered/Resolved]
  - Pulmonary embolism [Recovered/Resolved]
  - Haemorrhage [Unknown]
